FAERS Safety Report 20356068 (Version 1)
Quarter: 2022Q1

REPORT INFORMATION
  Report Type: Spontaneous
  Country: None (occurrence: US)
  Receive Date: 20220120
  Receipt Date: 20220120
  Transmission Date: 20220423
  Serious: No
  Sender: FDA-Public Use
  Company Number: US-Akron, Inc.-2124134

PATIENT
  Age: 72 Year
  Sex: Male

DRUGS (1)
  1. DORZOLAMIDE HYDROCHLORIDE [Suspect]
     Active Substance: DORZOLAMIDE HYDROCHLORIDE
     Route: 047

REACTIONS (3)
  - Eyelids pruritus [Not Recovered/Not Resolved]
  - Eyelid rash [Not Recovered/Not Resolved]
  - Visual acuity reduced [Not Recovered/Not Resolved]
